FAERS Safety Report 21081180 (Version 1)
Quarter: 2022Q3

REPORT INFORMATION
  Report Type: Spontaneous
  Country: US (occurrence: None)
  Receive Date: 20220713
  Receipt Date: 20220713
  Transmission Date: 20221027
  Serious: Yes (Death)
  Sender: FDA-Public Use
  Company Number: None

PATIENT
  Age: 51 Year
  Sex: Male

DRUGS (1)
  1. AMBRISENTAN [Suspect]
     Active Substance: AMBRISENTAN
     Indication: Pulmonary arterial hypertension
     Dosage: FREQUENCY : DAILY;?
     Route: 048
     Dates: start: 20210413, end: 20220629

REACTIONS (10)
  - Septic shock [None]
  - Urine output decreased [None]
  - Encephalopathy [None]
  - Injury [None]
  - Azotaemia [None]
  - Agitation [None]
  - Hypoxia [None]
  - Pneumonia aspiration [None]
  - Acute respiratory distress syndrome [None]
  - Pulmonary oedema [None]

NARRATIVE: CASE EVENT DATE: 20220629
